FAERS Safety Report 18753598 (Version 2)
Quarter: 2021Q1

REPORT INFORMATION
  Report Type: Spontaneous
  Country: US (occurrence: US)
  Receive Date: 20210118
  Receipt Date: 20210308
  Transmission Date: 20210419
  Serious: No
  Sender: FDA-Public Use
  Company Number: US-ALXN-A202100312

PATIENT
  Sex: Female

DRUGS (2)
  1. STRENSIQ [Suspect]
     Active Substance: ASFOTASE ALFA
     Indication: HYPOPHOSPHATASIA
     Dosage: UNK
     Route: 065
     Dates: start: 2016
  2. STRENSIQ [Suspect]
     Active Substance: ASFOTASE ALFA
     Dosage: 6 MG/KG, (0.75 ML,) UNK
     Route: 065
     Dates: start: 2020

REACTIONS (5)
  - Underdose [Unknown]
  - Arthralgia [Unknown]
  - Bone density decreased [Unknown]
  - X-ray limb abnormal [Unknown]
  - Pain [Unknown]
